FAERS Safety Report 17219436 (Version 1)
Quarter: 2019Q4

REPORT INFORMATION
  Report Type: Spontaneous
  Country: US (occurrence: US)
  Receive Date: 20191231
  Receipt Date: 20191231
  Transmission Date: 20200122
  Serious: No
  Sender: FDA-Public Use
  Company Number: US-VERTEX PHARMACEUTICALS-2019-013643

PATIENT
  Sex: Female

DRUGS (1)
  1. ORKAMBI [Suspect]
     Active Substance: IVACAFTOR\LUMACAFTOR
     Indication: CYSTIC FIBROSIS
     Dosage: 200/125 MG, UNKNOWN FREQUENCY
     Route: 048
     Dates: start: 20170110, end: 201703

REACTIONS (3)
  - Oligomenorrhoea [Unknown]
  - Menorrhagia [Unknown]
  - Affective disorder [Unknown]

NARRATIVE: CASE EVENT DATE: 2017
